FAERS Safety Report 14461863 (Version 1)
Quarter: 2018Q1

REPORT INFORMATION
  Report Type: Other
  Country: US (occurrence: US)
  Receive Date: 20180130
  Receipt Date: 20180130
  Transmission Date: 20180509
  Serious: No
  Sender: FDA-Public Use
  Company Number: US-ACORDA-ACO_144058_2017

PATIENT
  Sex: Female
  Weight: 97.51 kg

DRUGS (6)
  1. BACLOFEN. [Concomitant]
     Active Substance: BACLOFEN
     Indication: PRODUCT USED FOR UNKNOWN INDICATION
     Dosage: 20 MG, BID
     Route: 065
  2. IMBRUVICA [Concomitant]
     Active Substance: IBRUTINIB
     Indication: PRODUCT USED FOR UNKNOWN INDICATION
     Dosage: UNK
     Route: 065
  3. AMPYRA [Suspect]
     Active Substance: DALFAMPRIDINE
     Indication: MULTIPLE SCLEROSIS
  4. ZYRTEC [Suspect]
     Active Substance: CETIRIZINE HYDROCHLORIDE
     Indication: URTICARIA
     Dosage: UNK, ONCE
     Route: 065
  5. MODAFINIL. [Concomitant]
     Active Substance: MODAFINIL
     Indication: PRODUCT USED FOR UNKNOWN INDICATION
     Dosage: 50 MG, BID
     Route: 065
  6. AMPYRA [Suspect]
     Active Substance: DALFAMPRIDINE
     Indication: GAIT DISTURBANCE
     Dosage: 10 MG, BID
     Route: 048
     Dates: start: 2017, end: 2017

REACTIONS (4)
  - Pruritus [Recovering/Resolving]
  - Somnolence [Recovering/Resolving]
  - Middle insomnia [Recovering/Resolving]
  - Urticaria [Recovered/Resolved]
